FAERS Safety Report 14677622 (Version 1)
Quarter: 2018Q1

REPORT INFORMATION
  Report Type: Spontaneous
  Country: US (occurrence: US)
  Receive Date: 20180324
  Receipt Date: 20180324
  Transmission Date: 20180509
  Serious: Yes (Life-Threatening, Hospitalization, Disabling, Other)
  Sender: FDA-Public Use
  Company Number: None

PATIENT
  Age: 20 Year
  Sex: Female
  Weight: 56.25 kg

DRUGS (9)
  1. BENADRYL [Concomitant]
     Active Substance: DIPHENHYDRAMINE HYDROCHLORIDE
  2. IV GADOLINIUM GIVEN DURING AN MRI [Suspect]
     Active Substance: GADOLINIUM
     Indication: HEADACHE
     Dosage: ?          OTHER STRENGTH:DON^T KNOW;QUANTITY:12 DON^T KNOW;OTHER FREQUENCY:DON^T KNOW;?
     Route: 042
  3. ATENOLOL. [Concomitant]
     Active Substance: ATENOLOL
  4. FIORICET [Concomitant]
     Active Substance: ACETAMINOPHEN\BUTALBITAL\CAFFEINE
  5. ZOFRAN [Concomitant]
     Active Substance: ONDANSETRON HYDROCHLORIDE
  6. DDVAVP [Concomitant]
  7. XANAX [Concomitant]
     Active Substance: ALPRAZOLAM
  8. PEPTO-BISMOL [Concomitant]
     Active Substance: BISMUTH SUBSALICYLATE
  9. ADVIL [Concomitant]
     Active Substance: IBUPROFEN

REACTIONS (21)
  - Diarrhoea [None]
  - Anxiety [None]
  - Bone neoplasm [None]
  - Migraine [None]
  - Arthralgia [None]
  - Bone pain [None]
  - Pruritus [None]
  - Vomiting [None]
  - Fatigue [None]
  - Headache [None]
  - Myalgia [None]
  - Occipital neuralgia [None]
  - Tremor [None]
  - Heart rate increased [None]
  - Feeling abnormal [None]
  - Nausea [None]
  - Exercise tolerance decreased [None]
  - Metal poisoning [None]
  - Rash [None]
  - Depression [None]
  - Nightmare [None]

NARRATIVE: CASE EVENT DATE: 20140414
